FAERS Safety Report 7706660-1 (Version None)
Quarter: 2011Q3

REPORT INFORMATION
  Report Type: 
  Country: None (occurrence: None)
  Receive Date: 20110824
  Receipt Date: 20110819
  Transmission Date: 20111222
  Serious: Yes (Other)
  Sender: FDA-Public Use
  Company Number: GB-PFIZER INC-2011147588

PATIENT
  Age: 23 Year
  Sex: Female

DRUGS (4)
  1. VARENICLINE TARTRATE [Suspect]
     Dosage: 1 MG, 2X/DAY
     Route: 048
     Dates: start: 20110101, end: 20110602
  2. VARENICLINE TARTRATE [Suspect]
     Indication: SMOKING CESSATION THERAPY
     Dosage: 0.5 MG, UNK
     Route: 048
     Dates: start: 20110514, end: 20110101
  3. VARENICLINE TARTRATE [Suspect]
     Dosage: 0.5 MG, UNK
     Route: 048
     Dates: start: 20110603, end: 20110628
  4. DEPO-PROVERA [Concomitant]
     Indication: CONTRACEPTION
     Dosage: 150 MG, EVERY 3 MONTHS
     Route: 030
     Dates: start: 20110408

REACTIONS (8)
  - ANXIETY [None]
  - STRESS [None]
  - AGORAPHOBIA [None]
  - NAUSEA [None]
  - ABNORMAL DREAMS [None]
  - FEELING ABNORMAL [None]
  - POOR QUALITY SLEEP [None]
  - NEGATIVE THOUGHTS [None]
